FAERS Safety Report 4360818-0 (Version None)
Quarter: 2004Q2

REPORT INFORMATION
  Report Type: 
  Country: None (occurrence: None)
  Receive Date: 20040517
  Receipt Date: 20040112
  Transmission Date: 20050107
  Serious: Yes (Other)
  Sender: FDA-Public Use
  Company Number: FR-JNJFOC-20030706460

PATIENT
  Age: 1 Month
  Sex: Male
  Weight: 1.6 kg

DRUGS (8)
  1. CISAPRIDE (CISAPRIDE) UNSPECIFIED [Suspect]
     Indication: FEEDING DISORDER
     Dates: start: 20030716, end: 20030723
  2. *PLACEBO* (PLACEBO) [Suspect]
     Indication: FEEDING PROBLEM IN NEWBORN
     Dosage: ORAL
     Route: 048
     Dates: start: 20030716, end: 20030723
  3. CAFEINE (CAFFEINE) [Concomitant]
  4. NEORECORMON (EPOETIN BETA) [Concomitant]
  5. VANCOMYCIN [Concomitant]
  6. FERROSTRANG (SODIUM FEREDETATE) [Concomitant]
  7. DEXAMETHASONE SODIUM PHOSPHATE [Concomitant]
  8. L-TYHYROXINE (LEVOTHYROXINE SODIUM) [Concomitant]

REACTIONS (1)
  - ELECTROCARDIOGRAM QT CORRECTED INTERVAL PROLONGED [None]
